FAERS Safety Report 4957472-3 (Version None)
Quarter: 2006Q1

REPORT INFORMATION
  Report Type: 
  Country: None (occurrence: None)
  Receive Date: 20060328
  Receipt Date: 20060328
  Transmission Date: 20060701
  Serious: Yes (Life-Threatening, Disabling)
  Sender: FDA-Public Use
  Company Number: None

PATIENT
  Age: 70 Year
  Sex: Female
  Weight: 83.4619 kg

DRUGS (1)
  1. GENTAMICIN [Suspect]
     Indication: INFECTION
     Dosage: 600 MG  DAILY
     Route: 042
     Dates: start: 20060201, end: 20060306

REACTIONS (6)
  - DIFFICULTY IN WALKING [None]
  - DIZZINESS [None]
  - HYPOACUSIS [None]
  - NAUSEA [None]
  - VERTIGO [None]
  - VISION BLURRED [None]
